FAERS Safety Report 23520386 (Version 3)
Quarter: 2025Q2

REPORT INFORMATION
  Report Type: Report from Study
  Country: IL (occurrence: IL)
  Receive Date: 20240214
  Receipt Date: 20250529
  Transmission Date: 20250716
  Serious: Yes (Hospitalization, Other)
  Sender: TAKEDA
  Company Number: IL-TAKEDA-2024TUS013187

PATIENT
  Age: 21 Year
  Sex: Male
  Weight: 102 kg

DRUGS (3)
  1. VEDOLIZUMAB [Suspect]
     Active Substance: VEDOLIZUMAB
     Indication: Crohn^s disease
     Dates: start: 20230817, end: 20231128
  2. CEFUROXIME [Concomitant]
     Active Substance: CEFUROXIME
     Indication: Abscess
     Dosage: 4500 MILLIGRAM, QD
     Dates: start: 20231221, end: 20240104
  3. FLAGYL [Concomitant]
     Active Substance: METRONIDAZOLE\METRONIDAZOLE HYDROCHLORIDE
     Indication: Abscess
     Dosage: 1500 MILLIGRAM, QD
     Dates: start: 20231221, end: 20240104

REACTIONS (1)
  - Abdominal abscess [Recovering/Resolving]

NARRATIVE: CASE EVENT DATE: 20231221
